FAERS Safety Report 26167156 (Version 1)
Quarter: 2025Q4

REPORT INFORMATION
  Report Type: Spontaneous
  Country: US (occurrence: None)
  Receive Date: 20251217
  Receipt Date: 20251217
  Transmission Date: 20260118
  Serious: No
  Sender: APOTEX
  Company Number: US-APOTEX-2025AP033229

PATIENT
  Age: 85 Year
  Sex: Female

DRUGS (2)
  1. DEXAMETHASONE [Suspect]
     Active Substance: DEXAMETHASONE
     Indication: Immune effector cell-associated neurotoxicity syndrome
     Dosage: 20 MILLIGRAM, Q.6H
     Route: 065
  2. GLOFITAMAB [Concomitant]
     Active Substance: GLOFITAMAB
     Indication: Immune effector cell-associated neurotoxicity syndrome
     Dosage: UNK
     Route: 065

REACTIONS (3)
  - Tachypnoea [Unknown]
  - Vomiting [Unknown]
  - Nausea [Unknown]
